FAERS Safety Report 8622031-8 (Version None)
Quarter: 2012Q3

REPORT INFORMATION
  Report Type: 
  Country: None (occurrence: None)
  Receive Date: 20120823
  Receipt Date: 20120823
  Transmission Date: 20120928
  Serious: Yes (Other)
  Sender: FDA-Public Use
  Company Number: None

PATIENT
  Age: 49 Year
  Sex: Female
  Weight: 58.9676 kg

DRUGS (3)
  1. NUVIGIL [Suspect]
     Indication: FATIGUE
     Dosage: 1 TABLET PER DAY
     Dates: start: 20111121
  2. NUVIGIL [Suspect]
     Indication: FATIGUE
     Dosage: 1 TABLET PER DAY
     Dates: start: 20111122
  3. NUVIGIL [Suspect]
     Indication: FATIGUE
     Dosage: 1 TABLET PER DAY
     Dates: start: 20111123

REACTIONS (4)
  - ANAPHYLACTIC SHOCK [None]
  - CHEST PAIN [None]
  - PRURITUS [None]
  - URTICARIA [None]
